FAERS Safety Report 25551532 (Version 1)
Quarter: 2025Q3

REPORT INFORMATION
  Report Type: Spontaneous
  Country: EU (occurrence: EU)
  Receive Date: 20250714
  Receipt Date: 20250714
  Transmission Date: 20251021
  Serious: Yes (Life-Threatening, Other)
  Sender: SANDOZ
  Company Number: EU-MLMSERVICE-20250703-PI563416-00117-1

PATIENT
  Age: 50 Year
  Sex: Male

DRUGS (8)
  1. BORTEZOMIB [Suspect]
     Active Substance: BORTEZOMIB
     Indication: T-cell lymphoma
     Dosage: 1.3 MG/M2, QD (ON DAYS 1, 4, 8, AND 11 RECEIVED 3 CYCLES (21 DAYS PER CYCLES)
     Route: 058
     Dates: start: 202204, end: 2022
  2. BORTEZOMIB [Suspect]
     Active Substance: BORTEZOMIB
     Indication: Non-Hodgkin^s lymphoma
  3. DECADRON (DEXAMETHASONE SODIUM PHOSPHATE) [Suspect]
     Active Substance: DEXAMETHASONE SODIUM PHOSPHATE
     Indication: T-cell lymphoma
     Dosage: 20 MG, QD (ON DAYS 1?2, 4?5, 8?9, 11 AND 12, FOR A  TOTAL DOSE OF 160 MG PER CYCLE (3 CYCLES 21 DAYS
     Route: 042
     Dates: start: 202204, end: 2022
  4. DECADRON (DEXAMETHASONE SODIUM PHOSPHATE) [Suspect]
     Active Substance: DEXAMETHASONE SODIUM PHOSPHATE
     Indication: Non-Hodgkin^s lymphoma
     Route: 065
     Dates: start: 2019
  5. TOLODODEKIN ALFA [Suspect]
     Active Substance: TOLODODEKIN ALFA
     Indication: T-cell lymphoma
     Dosage: 16 MG/KG, QW 9DAYS 1, 8, AND 15 FOR 3 CYCLES (21 DAYS PER CYCLE)
     Route: 042
     Dates: start: 202204, end: 2022
  6. TOLODODEKIN ALFA [Suspect]
     Active Substance: TOLODODEKIN ALFA
     Indication: Non-Hodgkin^s lymphoma
  7. NELARABINE [Suspect]
     Active Substance: NELARABINE
     Indication: T-cell lymphoma
     Dosage: 1.5 G/M2, QD (ALTERNATE-DAY SCHEDULE (1.5 G/M2 PER DAY  ON DAYS 1, 3, AND 5) FOR 2 CYCLES)
     Route: 042
     Dates: start: 202112
  8. NELARABINE [Suspect]
     Active Substance: NELARABINE
     Indication: Non-Hodgkin^s lymphoma

REACTIONS (7)
  - Thrombocytopenia [Unknown]
  - Rhinitis [Recovering/Resolving]
  - Infusion related reaction [Recovering/Resolving]
  - Bronchopulmonary aspergillosis [Recovering/Resolving]
  - Cough [Recovering/Resolving]
  - Anaemia [Unknown]
  - Febrile neutropenia [Recovering/Resolving]

NARRATIVE: CASE EVENT DATE: 20220101
